FAERS Safety Report 11191384 (Version 3)
Quarter: 2015Q3

REPORT INFORMATION
  Report Type: Report from Study
  Country: PT (occurrence: PT)
  Receive Date: 20150616
  Receipt Date: 20150723
  Transmission Date: 20151125
  Serious: Yes (Hospitalization)
  Sender: FDA-Public Use
  Company Number: PHHY2015PT069757

PATIENT
  Age: 55 Year
  Sex: Female

DRUGS (4)
  1. CITALOPRAM [Concomitant]
     Active Substance: CITALOPRAM HYDROBROMIDE
     Indication: DEPRESSION
     Dosage: 20 MG, UNK
     Route: 065
  2. GILENYA [Suspect]
     Active Substance: FINGOLIMOD HYDROCHLORIDE
     Indication: MULTIPLE SCLEROSIS
     Dosage: 0.5 MG, QD
     Route: 048
     Dates: start: 20150514
  3. SEDOXIL [Concomitant]
     Active Substance: MEXAZOLAM
     Indication: DEPRESSION
     Dosage: UNK
     Route: 065
  4. DILTIZEM [Concomitant]
     Indication: DEPRESSION
     Dosage: 150 MG, UNK
     Route: 065

REACTIONS (4)
  - Blood pressure decreased [Unknown]
  - Fall [Recovered/Resolved]
  - Heart rate decreased [Recovered/Resolved]
  - Dizziness [Recovered/Resolved]

NARRATIVE: CASE EVENT DATE: 20150514
